FAERS Safety Report 6601957-0 (Version None)
Quarter: 2010Q1

REPORT INFORMATION
  Report Type: 
  Country: None (occurrence: None)
  Receive Date: 20100225
  Receipt Date: 20100218
  Transmission Date: 20100710
  Serious: Yes (Hospitalization)
  Sender: FDA-Public Use
  Company Number: ES-MERCK-1002ESP00056

PATIENT
  Age: 78 Year
  Sex: Male

DRUGS (4)
  1. ZETIA [Suspect]
     Route: 048
     Dates: start: 20080401, end: 20080530
  2. FLUOXETINE [Concomitant]
     Route: 048
     Dates: start: 20080101
  3. NOBRITOL [Concomitant]
     Route: 048
     Dates: start: 20080101
  4. TRANKIMAZIN [Concomitant]
     Route: 048
     Dates: start: 20080101

REACTIONS (1)
  - MYOSITIS [None]
